FAERS Safety Report 24120221 (Version 1)
Quarter: 2024Q3

REPORT INFORMATION
  Report Type: Spontaneous
  Country: RU (occurrence: RU)
  Receive Date: 20240722
  Receipt Date: 20240722
  Transmission Date: 20241016
  Serious: Yes (Death, Other)
  Sender: ELI LILLY AND CO
  Company Number: RU-ELI_LILLY_AND_COMPANY-RU202407012592

PATIENT
  Sex: Male

DRUGS (17)
  1. RAMUCIRUMAB [Suspect]
     Active Substance: RAMUCIRUMAB
     Indication: Gastric cancer
     Dosage: UNK UNK, CYCLICAL
     Route: 042
     Dates: start: 20211207, end: 20211214
  2. RAMUCIRUMAB [Suspect]
     Active Substance: RAMUCIRUMAB
     Dosage: UNK UNK, DAILY
     Route: 042
     Dates: start: 20211215, end: 20220318
  3. RAMUCIRUMAB [Suspect]
     Active Substance: RAMUCIRUMAB
     Dosage: UNK UNK, DAILY
     Route: 042
     Dates: start: 20220401, end: 20220407
  4. RAMUCIRUMAB [Suspect]
     Active Substance: RAMUCIRUMAB
     Dosage: UNK UNK, DAILY
     Route: 042
     Dates: start: 20220429, end: 20220429
  5. RAMUCIRUMAB [Suspect]
     Active Substance: RAMUCIRUMAB
     Dosage: UNK UNK, DAILY
     Route: 042
     Dates: start: 20220513, end: 20220513
  6. PACLITAXEL [Suspect]
     Active Substance: PACLITAXEL
     Indication: Gastric cancer
     Dosage: UNK UNK, CYCLICAL
     Route: 042
     Dates: start: 20211207, end: 20211214
  7. PACLITAXEL [Suspect]
     Active Substance: PACLITAXEL
     Dosage: UNK UNK, DAILY
     Route: 042
     Dates: start: 20211215, end: 20220318
  8. PACLITAXEL [Suspect]
     Active Substance: PACLITAXEL
     Dosage: UNK UNK, DAILY
     Route: 042
     Dates: start: 20220401, end: 20220407
  9. PACLITAXEL [Suspect]
     Active Substance: PACLITAXEL
     Dosage: UNK UNK, DAILY
     Route: 042
     Dates: start: 20220429, end: 20220429
  10. PACLITAXEL [Suspect]
     Active Substance: PACLITAXEL
     Dosage: UNK UNK, DAILY
     Route: 042
     Dates: start: 20220505, end: 20220505
  11. PACLITAXEL [Suspect]
     Active Substance: PACLITAXEL
     Dosage: UNK UNK, DAILY
     Route: 042
     Dates: start: 20220513, end: 20220513
  12. OMEPRAZOLE [Concomitant]
     Active Substance: OMEPRAZOLE
     Indication: Product used for unknown indication
  13. HEPTOR [ADEMETIONINE] [Concomitant]
     Indication: Product used for unknown indication
  14. IRINOTECAN [Concomitant]
     Active Substance: IRINOTECAN
     Indication: Product used for unknown indication
  15. HERCEPTIN [Concomitant]
     Active Substance: TRASTUZUMAB
     Indication: Product used for unknown indication
  16. DOCETAXEL [Concomitant]
     Active Substance: DOCETAXEL\DOCETAXEL ANHYDROUS
     Indication: Product used for unknown indication
  17. CAPECITABINE [Concomitant]
     Active Substance: CAPECITABINE
     Indication: Product used for unknown indication

REACTIONS (10)
  - Death [Fatal]
  - Hepatic cirrhosis [Unknown]
  - Malignant neoplasm progression [Unknown]
  - Chronic hepatitis C [Unknown]
  - Lymphadenopathy [Unknown]
  - Ascites [Unknown]
  - Psoriasis [Unknown]
  - Gallbladder disorder [Unknown]
  - Asthma [Unknown]
  - Hepatosplenomegaly [Unknown]

NARRATIVE: CASE EVENT DATE: 20220727
